FAERS Safety Report 8027881-7 (Version None)
Quarter: 2012Q1

REPORT INFORMATION
  Report Type: 
  Country: None (occurrence: None)
  Receive Date: 20120104
  Receipt Date: 20111228
  Transmission Date: 20120608
  Serious: Yes (Death, Hospitalization)
  Sender: FDA-Public Use
  Company Number: DKLU1058591

PATIENT
  Age: 20 Year
  Sex: Female

DRUGS (4)
  1. ONFI (CLOBAZAM) (CLOBAZAM) [Suspect]
     Indication: MYOCLONIC EPILEPSY
     Dosage: 1 IN 1 D, ORAL
     Route: 048
     Dates: start: 20041030, end: 20050204
  2. ACETAMINOPHEN [Concomitant]
  3. CEFPODOXIME PROXETIL [Concomitant]
  4. VALPROIC ACID [Suspect]
     Indication: MYOCLONIC EPILEPSY
     Dosage: 500 MG MILLIGRAM(S), 2 IN 1 D, ORAL)
     Route: 048
     Dates: start: 20041030, end: 20050204

REACTIONS (12)
  - CONVULSION [None]
  - LIVER TRANSPLANT [None]
  - HEPATIC FIBROSIS [None]
  - HEPATIC STEATOSIS [None]
  - HEPATITIS TOXIC [None]
  - NO THERAPEUTIC RESPONSE [None]
  - HAEMOGLOBIN DECREASED [None]
  - HEPATIC FAILURE [None]
  - HEADACHE [None]
  - COUGH [None]
  - INFLUENZA [None]
  - HEPATIC NECROSIS [None]
